FAERS Safety Report 5781104-8 (Version None)
Quarter: 2008Q2

REPORT INFORMATION
  Report Type: 
  Country: None (occurrence: None)
  Receive Date: 20080620
  Receipt Date: 20080610
  Transmission Date: 20081010
  Serious: Yes (Hospitalization)
  Sender: FDA-Public Use
  Company Number: US-GILEAD-2008-0016694

PATIENT
  Sex: Male
  Weight: 75.364 kg

DRUGS (23)
  1. GS-9137 [Suspect]
     Indication: HIV INFECTION
     Route: 048
     Dates: start: 20080130
  2. GS-9137 [Suspect]
     Route: 048
     Dates: start: 20070531, end: 20080129
  3. TRUVADA [Suspect]
     Indication: HIV INFECTION
     Route: 048
     Dates: start: 20071001
  4. TRUVADA [Suspect]
     Dosage: 200/300 MG
     Route: 048
     Dates: start: 20070531, end: 20071001
  5. RITONAVIR [Concomitant]
     Indication: HIV INFECTION
     Route: 048
     Dates: start: 20071001
  6. RITONAVIR [Concomitant]
     Route: 048
     Dates: start: 20070531, end: 20071001
  7. DARUNAVIR [Concomitant]
     Indication: HIV INFECTION
     Dates: start: 20070531
  8. VIDEX EC [Concomitant]
     Indication: HIV INFECTION
     Dates: start: 20070531
  9. VALTREX [Concomitant]
     Indication: ANTIVIRAL PROPHYLAXIS
     Route: 048
     Dates: start: 20010101
  10. BACTRIM DS [Concomitant]
     Indication: ANTIFUNGAL PROPHYLAXIS
     Route: 048
     Dates: start: 19960101
  11. LISINOPRIL [Concomitant]
     Indication: PROPHYLAXIS
     Route: 048
     Dates: start: 20020101
  12. TESTOSTERONE [Concomitant]
     Indication: HYPOGONADISM
     Route: 030
     Dates: start: 20010101
  13. TRICOR [Concomitant]
     Indication: HYPERCHOLESTEROLAEMIA
     Route: 048
     Dates: start: 20030101
  14. OMACOR [Concomitant]
     Indication: HYPERCHOLESTEROLAEMIA
     Route: 048
     Dates: start: 20060515
  15. VITAMIN CAP [Concomitant]
     Indication: SUPPLEMENTATION THERAPY
     Route: 048
     Dates: start: 19870101
  16. VIAGRA [Concomitant]
     Indication: ERECTILE DYSFUNCTION
     Route: 048
     Dates: start: 19990101
  17. LEVITRA [Concomitant]
     Indication: ERECTILE DYSFUNCTION
     Route: 048
     Dates: start: 20030101
  18. TYLENOL [Concomitant]
     Indication: HEADACHE
     Route: 048
     Dates: start: 20071201
  19. HUMULIN R [Concomitant]
     Indication: TYPE 2 DIABETES MELLITUS
     Route: 058
     Dates: start: 20080320
  20. STOOL SOFTENER [Concomitant]
     Dates: start: 20080601
  21. POTASSIUM CHLORIDE [Concomitant]
     Indication: SUPPLEMENTATION THERAPY
     Dates: start: 20080601
  22. BONIVA [Concomitant]
     Indication: OSTEOPENIA
  23. INSULIN [Concomitant]
     Indication: TYPE 2 DIABETES MELLITUS

REACTIONS (1)
  - CONVULSION [None]
